FAERS Safety Report 8399900-X (Version None)
Quarter: 2012Q2

REPORT INFORMATION
  Report Type: 
  Country: None (occurrence: None)
  Receive Date: 20120531
  Receipt Date: 20120521
  Transmission Date: 20120825
  Serious: Yes (Hospitalization)
  Sender: FDA-Public Use
  Company Number: US-ELI_LILLY_AND_COMPANY-US201205007672

PATIENT
  Sex: Female

DRUGS (13)
  1. OMEPRAZOLE [Concomitant]
     Dosage: UNK
  2. ENALAPRIL MALEATE [Concomitant]
  3. ASPIRIN [Concomitant]
     Dosage: UNK
  4. CLARITIN [Concomitant]
     Dosage: UNK
  5. METOPROLOL TARTRATE [Concomitant]
     Dosage: UNK
  6. CALCIUM + VITAMIN D [Concomitant]
     Dosage: UNK
  7. FORTEO [Suspect]
     Indication: OSTEOPOROSIS
     Dosage: 20 UG, QD
  8. FIBER [Concomitant]
     Dosage: UNK
  9. EVISTA [Suspect]
     Indication: OSTEOPOROSIS
     Dosage: 60 MG, QD
     Dates: start: 20120221
  10. LOVASTATIN [Concomitant]
     Dosage: UNK
  11. MULTI-VITAMIN [Concomitant]
     Dosage: UNK
  12. OSCAL                              /00751519/ [Concomitant]
     Dosage: UNK
  13. CRANBERRY [Concomitant]
     Dosage: UNK

REACTIONS (3)
  - MEDICATION ERROR [None]
  - HERNIA [None]
  - CHOLELITHIASIS [None]
